FAERS Safety Report 20584521 (Version 3)
Quarter: 2022Q2

REPORT INFORMATION
  Report Type: Report from Study
  Country: US (occurrence: US)
  Receive Date: 20220311
  Receipt Date: 20220428
  Transmission Date: 20220721
  Serious: Yes (Disabling, Other)
  Sender: FDA-Public Use
  Company Number: US-NOVARTISPH-NVSC2022US053166

PATIENT
  Age: 61 Year
  Sex: Male
  Weight: 141.5 kg

DRUGS (6)
  1. ENTRESTO [Suspect]
     Active Substance: SACUBITRIL\VALSARTAN
     Indication: Cardiac failure
     Dosage: 50 MG (24.3 MG SACUBITRIL AND 25.7 MG VALSARTAN), BID
     Route: 048
     Dates: start: 20220131, end: 20220203
  2. METOPROLOL [Suspect]
     Active Substance: METOPROLOL
     Indication: Cardiac failure
     Dosage: 150 MG, BID
     Route: 048
  3. LASIX [Concomitant]
     Active Substance: FUROSEMIDE
     Indication: Cardiac failure
     Dosage: 20 MG
     Route: 065
  4. LASIX [Concomitant]
     Active Substance: FUROSEMIDE
     Dosage: 40 MG
     Route: 048
  5. DIGOXIN [Concomitant]
     Active Substance: DIGOXIN
     Indication: Cardiac failure
     Dosage: 25 UG
     Route: 048
     Dates: start: 20220222
  6. DILTIAZEM [Concomitant]
     Active Substance: DILTIAZEM
     Indication: Atrial fibrillation
     Dosage: 240 MG
     Route: 048
     Dates: end: 20220307

REACTIONS (11)
  - Vital functions abnormal [Recovering/Resolving]
  - Hypotension [Recovered/Resolved]
  - Disturbance in attention [Recovered/Resolved]
  - Dizziness [Recovered/Resolved]
  - Hypertension [Unknown]
  - Heart rate increased [Unknown]
  - Glycosylated haemoglobin decreased [Unknown]
  - Blood pressure fluctuation [Unknown]
  - Insomnia [Unknown]
  - Palpitations [Unknown]
  - Product dose omission issue [Unknown]

NARRATIVE: CASE EVENT DATE: 20220308
